FAERS Safety Report 6774905-0 (Version None)
Quarter: 2010Q2

REPORT INFORMATION
  Report Type: 
  Country: None (occurrence: None)
  Receive Date: 20100617
  Receipt Date: 20100607
  Transmission Date: 20101027
  Serious: Yes (Death)
  Sender: FDA-Public Use
  Company Number: CA-ELI_LILLY_AND_COMPANY-CA201005005458

PATIENT
  Sex: Male

DRUGS (7)
  1. ZYPREXA [Suspect]
     Indication: AUTISM
     Dosage: 2.5 MG, EACH MORNING
     Route: 048
     Dates: end: 20080314
  2. ZYPREXA [Suspect]
     Dosage: 5 MG, EACH EVENING
     Route: 048
     Dates: end: 20080313
  3. ZOLOFT [Concomitant]
     Dosage: 25 MG, 2/D
     Route: 048
     Dates: end: 20080314
  4. BIPHENTIN [Concomitant]
     Dosage: 40 MG, EACH MORNING
  5. CLONIDINE [Concomitant]
     Dosage: 0.1 MG, DAILY (1/D)
     Dates: start: 20080108, end: 20080226
  6. HALOPERIDOL [Concomitant]
     Dates: start: 20080108, end: 20080110
  7. ATOMOXETINE HCL [Concomitant]
     Dates: end: 20080108

REACTIONS (15)
  - AGGRESSION [None]
  - ASPIRATION [None]
  - BALANCE DISORDER [None]
  - BLOOD PRESSURE DECREASED [None]
  - CARDIO-RESPIRATORY ARREST [None]
  - DYSTONIA [None]
  - ENURESIS [None]
  - EXTRAPYRAMIDAL DISORDER [None]
  - HYPERHIDROSIS [None]
  - OFF LABEL USE [None]
  - SOMNOLENCE [None]
  - TACHYPNOEA [None]
  - VOMITING [None]
  - WEIGHT INCREASED [None]
  - WITHDRAWAL SYNDROME [None]
